FAERS Safety Report 8299200-2 (Version None)
Quarter: 2012Q2

REPORT INFORMATION
  Report Type: 
  Country: None (occurrence: None)
  Receive Date: 20120419
  Receipt Date: 20120418
  Transmission Date: 20120825
  Serious: No
  Sender: FDA-Public Use
  Company Number: US-B.I. PHARMACEUTICALS,INC./RIDGEFIELD-2012-BP-07430BP

PATIENT

DRUGS (12)
  1. SYNTHROID [Concomitant]
     Dosage: 0.125 MG
     Route: 048
  2. TERAZOSIN HCL [Concomitant]
     Dosage: 5 MG
  3. PRADAXA [Suspect]
     Indication: CEREBROVASCULAR ACCIDENT PROPHYLAXIS
     Dosage: 300 MG
     Dates: start: 20120315
  4. ALBUTEROL [Concomitant]
     Route: 055
  5. CAPSAICIN [Concomitant]
  6. SILDENAFIL [Concomitant]
  7. TYLENOL W/ CODEINE NO. 3 [Concomitant]
     Route: 048
  8. CYCLOBENZAPRINE HYDROCHLORIDE [Concomitant]
     Route: 048
  9. PRADAXA [Suspect]
     Indication: ATRIAL FIBRILLATION
  10. FINASTERIDE [Concomitant]
     Dosage: 5 MG
     Route: 048
  11. VERAPAMIL [Concomitant]
     Dosage: 240 MG
     Route: 048
  12. ZOLPIDEM [Concomitant]
     Route: 048

REACTIONS (1)
  - INTERNATIONAL NORMALISED RATIO INCREASED [None]
